FAERS Safety Report 6022427-7 (Version None)
Quarter: 2008Q4

REPORT INFORMATION
  Report Type: 
  Country: None (occurrence: None)
  Receive Date: 20081221
  Receipt Date: 20081221
  Transmission Date: 20090506
  Serious: Yes (Hospitalization)
  Sender: FDA-Public Use
  Company Number: None

PATIENT
  Age: 39 Year
  Sex: Female
  Weight: 63.5036 kg

DRUGS (2)
  1. VAGIFEM [Suspect]
     Indication: MENSTRUAL DISORDER
     Dosage: 2 X A WEEK 1X VAG
     Route: 067
     Dates: start: 20081219, end: 20081219
  2. VAGIFEM [Suspect]
     Indication: VULVOVAGINAL DISCOMFORT
     Dosage: 2 X A WEEK 1X VAG
     Route: 067
     Dates: start: 20081219, end: 20081219

REACTIONS (2)
  - VAGINAL INFLAMMATION [None]
  - VULVOVAGINAL PAIN [None]
